FAERS Safety Report 25199068 (Version 1)
Quarter: 2025Q2

REPORT INFORMATION
  Report Type: Report from Study
  Country: US (occurrence: US)
  Receive Date: 20250415
  Receipt Date: 20250415
  Transmission Date: 20250716
  Serious: Yes (Other)
  Sender: Pyros Pharmaceuticals
  Company Number: 4 US-PYROS PHARMACEUTICALS, INC-2024-PYROSUS000110

PATIENT
  Sex: Male
  Weight: 11.34 kg

DRUGS (7)
  1. VIGPODER [Suspect]
     Active Substance: VIGABATRIN
     Indication: Infantile spasms
     Route: 048
     Dates: start: 20240617, end: 202412
  2. VIGPODER [Suspect]
     Active Substance: VIGABATRIN
     Route: 048
     Dates: start: 202412, end: 202412
  3. VIGPODER [Suspect]
     Active Substance: VIGABATRIN
     Route: 048
     Dates: start: 202412, end: 202412
  4. VIGPODER [Suspect]
     Active Substance: VIGABATRIN
     Route: 048
     Dates: start: 202412, end: 20241229
  5. VIGPODER [Suspect]
     Active Substance: VIGABATRIN
     Route: 048
     Dates: start: 20241230
  6. EPIDIOLEX [Concomitant]
     Active Substance: CANNABIDIOL
     Indication: Infantile spasms
     Route: 048
     Dates: start: 202408
  7. FAMOTIDINE [Concomitant]
     Active Substance: FAMOTIDINE
     Indication: Abdominal discomfort
     Route: 048
     Dates: start: 202402

REACTIONS (4)
  - Lennox-Gastaut syndrome [Not Recovered/Not Resolved]
  - Seizure [Not Recovered/Not Resolved]
  - Drug ineffective [Unknown]
  - Middle insomnia [Recovering/Resolving]

NARRATIVE: CASE EVENT DATE: 20240101
